FAERS Safety Report 12589403 (Version 1)
Quarter: 2016Q3

REPORT INFORMATION
  Report Type: Report from Study
  Country: US (occurrence: US)
  Receive Date: 20160725
  Receipt Date: 20160725
  Transmission Date: 20161109
  Serious: Yes (Other)
  Sender: FDA-Public Use
  Company Number: US-MALLINCKRODT-T201603070

PATIENT
  Sex: Male

DRUGS (16)
  1. COLCRYS [Concomitant]
     Active Substance: COLCHICINE
  2. CYCLOBENZAPRINE [Concomitant]
     Active Substance: CYCLOBENZAPRINE
  3. GABAPENTIN. [Concomitant]
     Active Substance: GABAPENTIN
  4. CLONIDINE. [Concomitant]
     Active Substance: CLONIDINE
  5. LISINOPRIL. [Concomitant]
     Active Substance: LISINOPRIL
  6. HYDROCODONE [Concomitant]
     Active Substance: HYDROCODONE
  7. BABY ASPIRIN [Concomitant]
     Active Substance: ASPIRIN
  8. NIFEDIPINE. [Concomitant]
     Active Substance: NIFEDIPINE
  9. FUROSEMIDE. [Concomitant]
     Active Substance: FUROSEMIDE
  10. ATORVASTATIN [Concomitant]
     Active Substance: ATORVASTATIN
  11. XANAX [Concomitant]
     Active Substance: ALPRAZOLAM
  12. REPOSITORY CORTICOTROPIN INJECTION [Suspect]
     Active Substance: CORTICOTROPIN
     Indication: SARCOIDOSIS
     Dosage: 80 UNITS TWICE WEEKLY (TUESDAYS AND FRIDAYS)
     Route: 065
     Dates: start: 201411
  13. ADVAIR HFA [Concomitant]
     Active Substance: FLUTICASONE PROPIONATE\SALMETEROL XINAFOATE
  14. PREDNISONE. [Concomitant]
     Active Substance: PREDNISONE
  15. HYDRALAZINE [Concomitant]
     Active Substance: HYDRALAZINE HYDROCHLORIDE
  16. CARVEDILOL. [Concomitant]
     Active Substance: CARVEDILOL

REACTIONS (2)
  - Dry mouth [Unknown]
  - Rectal haemorrhage [Recovered/Resolved]
